FAERS Safety Report 6022123-6 (Version None)
Quarter: 2008Q4

REPORT INFORMATION
  Report Type: 
  Country: None (occurrence: None)
  Receive Date: 20081223
  Receipt Date: 20081211
  Transmission Date: 20090506
  Serious: Yes (Life-Threatening, Hospitalization)
  Sender: FDA-Public Use
  Company Number: 108994

PATIENT
  Age: 87 Year
  Sex: Male

DRUGS (5)
  1. PSEUDOEPHEDRINE HCL [Suspect]
     Indication: NASAL CONGESTION
     Dosage: 120 MG/ 3 TIMES IN 6 HOURS/ ORAL
     Route: 048
  2. DIGOXIN [Concomitant]
  3. COUMADIN [Concomitant]
  4. ATENOLOL [Concomitant]
  5. ARICEPT [Concomitant]

REACTIONS (11)
  - ACCIDENTAL OVERDOSE [None]
  - ASTHENIA [None]
  - ATRIAL FIBRILLATION [None]
  - CONFUSIONAL STATE [None]
  - FLUSHING [None]
  - HYPERHIDROSIS [None]
  - HYPERTENSIVE CRISIS [None]
  - LOGORRHOEA [None]
  - MYOCARDIAL INFARCTION [None]
  - NERVOUSNESS [None]
  - VISION BLURRED [None]
